FAERS Safety Report 5447497-6 (Version None)
Quarter: 2007Q3

REPORT INFORMATION
  Report Type: 
  Country: None (occurrence: None)
  Receive Date: 20070910
  Receipt Date: 20070903
  Transmission Date: 20080115
  Serious: Yes (Other)
  Sender: FDA-Public Use
  Company Number: B0480183A

PATIENT
  Age: 59 Year
  Sex: Male
  Weight: 85 kg

DRUGS (6)
  1. LAMOTRIGINE [Suspect]
     Route: 048
     Dates: start: 20060601, end: 20070801
  2. EMCONCOR [Concomitant]
     Indication: STRESS
     Dosage: .5TAB PER DAY
     Route: 065
  3. FOSAMAX [Concomitant]
     Indication: OSTEOPOROSIS
     Dosage: 10MG PER DAY
     Route: 065
  4. STAURODORM [Concomitant]
     Indication: SLEEP DISORDER
  5. CRESTOR [Concomitant]
  6. XANAX [Concomitant]

REACTIONS (6)
  - ACCOMMODATION DISORDER [None]
  - CONFUSIONAL STATE [None]
  - ERECTILE DYSFUNCTION [None]
  - HUNGER [None]
  - RASH PRURITIC [None]
  - SLEEP DISORDER [None]
